FAERS Safety Report 18002118 (Version 1)
Quarter: 2020Q3

REPORT INFORMATION
  Report Type: Spontaneous
  Country: CA (occurrence: CA)
  Receive Date: 20200709
  Receipt Date: 20200709
  Transmission Date: 20201103
  Serious: Yes (Hospitalization)
  Sender: FDA-Public Use
  Company Number: CA-TEVA-2020-CA-1798006

PATIENT
  Age: 69 Year
  Sex: Male

DRUGS (7)
  1. NITROGLYCERIN PATCH [Concomitant]
     Active Substance: NITROGLYCERIN
  2. LITHIUM. [Concomitant]
     Active Substance: LITHIUM
  3. ASA [Concomitant]
     Active Substance: ASPIRIN
  4. METOPROLOL. [Concomitant]
     Active Substance: METOPROLOL
  5. TICAGRELOR. [Concomitant]
     Active Substance: TICAGRELOR
  6. RAMIPRIL. [Suspect]
     Active Substance: RAMIPRIL
     Indication: BIPOLAR DISORDER
  7. ROSUVASTATIN. [Concomitant]
     Active Substance: ROSUVASTATIN

REACTIONS (8)
  - Memory impairment [Recovered/Resolved]
  - Mobility decreased [Recovered/Resolved]
  - Sluggishness [Recovered/Resolved]
  - Toxicity to various agents [Recovered/Resolved]
  - Drug interaction [Recovered/Resolved]
  - Cognitive disorder [Recovered/Resolved]
  - Confusional state [Recovered/Resolved]
  - Sleep deficit [Recovered/Resolved]
